FAERS Safety Report 16500156 (Version 1)
Quarter: 2019Q3

REPORT INFORMATION
  Report Type: Spontaneous
  Country: US (occurrence: US)
  Receive Date: 20190628
  Receipt Date: 20190628
  Transmission Date: 20191004
  Serious: Yes (Life-Threatening, Other)
  Sender: FDA-Public Use
  Company Number: None

PATIENT
  Age: 1 Day
  Sex: Female
  Weight: .99 kg

DRUGS (2)
  1. CUROSURF [Suspect]
     Active Substance: PORACTANT ALFA
     Indication: NEONATAL RESPIRATORY DEPRESSION
     Dosage: ?          OTHER FREQUENCY:ONCE;?
     Route: 007
     Dates: start: 20190528, end: 20190528
  2. CUROSURF [Suspect]
     Active Substance: PORACTANT ALFA
     Indication: PREMATURE BABY
     Dosage: ?          OTHER FREQUENCY:ONCE;?
     Route: 007
     Dates: start: 20190528, end: 20190528

REACTIONS (1)
  - Incorrect dose administered [None]

NARRATIVE: CASE EVENT DATE: 20190529
